FAERS Safety Report 16341041 (Version 1)
Quarter: 2019Q2

REPORT INFORMATION
  Report Type: Spontaneous
  Country: US (occurrence: US)
  Receive Date: 20190416
  Receipt Date: 20190416
  Transmission Date: 20190711
  Serious: No
  Sender: FDA-Public Use
  Company Number: None

PATIENT
  Age: 26 Year
  Sex: Male
  Weight: 87.09 kg

DRUGS (1)
  1. ENBREL [Suspect]
     Active Substance: ETANERCEPT
     Indication: PSORIASIS
     Dosage: TWO TIMES A WEEK 72-96 HOURS APART AS DIRECTED
     Route: 058
     Dates: start: 201904

REACTIONS (3)
  - Arthropod bite [None]
  - Insurance issue [None]
  - Therapy cessation [None]
